FAERS Safety Report 14694605 (Version 1)
Quarter: 2018Q1

REPORT INFORMATION
  Report Type: Spontaneous
  Country: DE (occurrence: DE)
  Receive Date: 20180329
  Receipt Date: 20180329
  Transmission Date: 20180509
  Serious: No
  Sender: FDA-Public Use
  Company Number: DE-LINDE-DE-LHC-2018071

PATIENT
  Age: 72 Year
  Sex: Male

DRUGS (2)
  1. CARBON DIOXIDE (GENERIC) [Suspect]
     Active Substance: CARBON DIOXIDE
     Indication: ENDOSCOPIC VESSEL HARVESTING
     Route: 058
  2. CARBON DIOXIDE (GENERIC) [Suspect]
     Active Substance: CARBON DIOXIDE
     Route: 058

REACTIONS (1)
  - Air embolism [Recovered/Resolved]
